FAERS Safety Report 8079707-3 (Version None)
Quarter: 2012Q1

REPORT INFORMATION
  Report Type: 
  Country: None (occurrence: None)
  Receive Date: 20120128
  Receipt Date: 20110810
  Transmission Date: 20120608
  Serious: No
  Sender: FDA-Public Use
  Company Number: US-ABBOTT-11P-163-0845320-00

PATIENT
  Age: 24 Year
  Sex: Female

DRUGS (4)
  1. LORATADINE [Concomitant]
     Indication: HYPERSENSITIVITY
  2. LORATADINE [Concomitant]
     Indication: SEASONAL ALLERGY
     Dosage: DAILY
  3. OTC IBUPROFEN [Concomitant]
     Indication: PAIN
  4. HUMIRA [Suspect]
     Indication: CROHN'S DISEASE
     Dates: start: 20100401, end: 20110701

REACTIONS (2)
  - DRUG DOSE OMISSION [None]
  - CROHN'S DISEASE [None]
